FAERS Safety Report 8027079-2 (Version None)
Quarter: 2012Q1

REPORT INFORMATION
  Report Type: 
  Country: None (occurrence: None)
  Receive Date: 20120106
  Receipt Date: 20111229
  Transmission Date: 20120608
  Serious: Yes (Other)
  Sender: FDA-Public Use
  Company Number: US-BAYER-2011-027554

PATIENT
  Age: 24 Year
  Sex: Female
  Weight: 85 kg

DRUGS (2)
  1. YASMIN [Suspect]
     Dosage: UNK
     Dates: start: 20070101, end: 20070501
  2. MULTI-VITAMINS [Concomitant]
     Dosage: UNK UNK, QD

REACTIONS (10)
  - GENERAL PHYSICAL HEALTH DETERIORATION [None]
  - INJURY [None]
  - PAIN [None]
  - ANHEDONIA [None]
  - ABDOMINAL PAIN UPPER [None]
  - CHOLECYSTITIS CHRONIC [None]
  - CHOLELITHIASIS [None]
  - GALLBLADDER DISORDER [None]
  - ANXIETY [None]
  - EMOTIONAL DISTRESS [None]
